FAERS Safety Report 4466981-5 (Version None)
Quarter: 2004Q3

REPORT INFORMATION
  Report Type: 
  Country: None (occurrence: None)
  Receive Date: 20040930
  Receipt Date: 20040915
  Transmission Date: 20050211
  Serious: Yes (Other)
  Sender: FDA-Public Use
  Company Number: A0521913A

PATIENT
  Age: 60 Year
  Sex: Female

DRUGS (1)
  1. NICODERM CQ [Suspect]
     Indication: EX-SMOKER
     Dosage: 21 MG/TRANSDERMAL
     Route: 062
     Dates: start: 20040729

REACTIONS (2)
  - CONFUSIONAL STATE [None]
  - HYPOTHYROIDISM [None]
